FAERS Safety Report 7097096-8 (Version None)
Quarter: 2010Q4

REPORT INFORMATION
  Report Type: 
  Country: None (occurrence: None)
  Receive Date: 20101111
  Receipt Date: 20101029
  Transmission Date: 20110411
  Serious: Yes (Hospitalization, Other)
  Sender: FDA-Public Use
  Company Number: DE-PFIZER INC-2010142414

PATIENT
  Age: 61 Year
  Sex: Female
  Weight: 80 kg

DRUGS (4)
  1. IBUPROFEN [Suspect]
     Indication: NECK PAIN
     Dosage: 400 MG, 3X/DAY
     Route: 048
     Dates: start: 20081110, end: 20081112
  2. AMLODIPINE [Concomitant]
     Indication: HYPERTENSION
     Dosage: 5 MG, 2X/DAY
     Dates: start: 20081114
  3. RAMIPRIL [Concomitant]
     Indication: HYPERTENSION
     Dosage: 2.5 MG, 1X/DAY
     Route: 065
  4. OMEPRAZOLE [Concomitant]
     Indication: REFLUX OESOPHAGITIS
     Dosage: 20 MG, 1X/DAY
     Route: 065

REACTIONS (6)
  - ANAEMIA [None]
  - GASTRITIS [None]
  - HERNIA [None]
  - NEUROENDOCRINE TUMOUR [None]
  - TACHYCARDIA [None]
  - UPPER GASTROINTESTINAL HAEMORRHAGE [None]
